FAERS Safety Report 24452905 (Version 1)
Quarter: 2024Q4

REPORT INFORMATION
  Report Type: Spontaneous
  Country: US (occurrence: US)
  Receive Date: 20241017
  Receipt Date: 20241017
  Transmission Date: 20250114
  Serious: No
  Sender: SUNOVION
  Company Number: US-UROVANT SCIENCES GMBH-202405-URV-000695

PATIENT
  Sex: Male
  Weight: 72.562 kg

DRUGS (1)
  1. GEMTESA [Suspect]
     Active Substance: VIBEGRON
     Indication: Hypertonic bladder
     Dosage: UNK, 1, QD
     Route: 065
     Dates: start: 20240513

REACTIONS (2)
  - Drug ineffective [Unknown]
  - Nightmare [Unknown]
